FAERS Safety Report 8821870 (Version 1)
Quarter: 2012Q4

REPORT INFORMATION
  Report Type: 
  Country: HU (occurrence: HU)
  Receive Date: 20121002
  Receipt Date: 20121002
  Transmission Date: 20130627
  Serious: Yes (Other)
  Sender: FDA-Public Use
  Company Number: HU-PFIZER INC-2012239828

PATIENT
  Age: 60 Year
  Sex: Male
  Weight: 85 kg

DRUGS (9)
  1. LYRICA [Suspect]
     Indication: NEURALGIA
     Dosage: 150 mg, 2x/day
     Route: 048
     Dates: start: 2011, end: 201203
  2. DIAPREL [Concomitant]
     Dosage: started 2 years ago
  3. METFORMIN HYDROCHLORIDE [Concomitant]
     Dosage: started 2 years ago
  4. BYETTA [Concomitant]
     Dosage: started 2 years ago
  5. CHINOTAL [Concomitant]
     Dosage: started 3 years ago
  6. CARVEDILOL [Concomitant]
     Dosage: started 3-4 years ago
  7. COVEREX [Concomitant]
     Dosage: started 3 years ago
  8. ASPIRIN PROTECT [Concomitant]
     Dosage: started 3 years ago
  9. ZOCOR [Concomitant]
     Dosage: started 5 years ago

REACTIONS (2)
  - Drug ineffective [Not Recovered/Not Resolved]
  - Sensation of heaviness [Not Recovered/Not Resolved]
